FAERS Safety Report 5613964-5 (Version None)
Quarter: 2008Q1

REPORT INFORMATION
  Report Type: 
  Country: None (occurrence: None)
  Receive Date: 20080205
  Receipt Date: 20080129
  Transmission Date: 20080703
  Serious: Yes (Death)
  Sender: FDA-Public Use
  Company Number: US-MERCK-0801USA05685

PATIENT
  Age: 79 Year
  Sex: Female

DRUGS (6)
  1. DECADRON [Suspect]
     Route: 048
     Dates: start: 20050715, end: 20070701
  2. DECADRON [Suspect]
     Route: 048
     Dates: start: 20070220, end: 20070727
  3. REVLIMID [Suspect]
     Indication: MULTIPLE MYELOMA
     Route: 048
     Dates: start: 20061101, end: 20070109
  4. REVLIMID [Suspect]
     Route: 048
     Dates: start: 20070220, end: 20070727
  5. PROCRIT [Concomitant]
     Indication: ANAEMIA
     Route: 051
     Dates: start: 20050715
  6. THALOMID [Concomitant]
     Route: 065
     Dates: start: 20050711, end: 20060101

REACTIONS (4)
  - DISEASE PROGRESSION [None]
  - GASTRITIS EROSIVE [None]
  - MULTIPLE MYELOMA [None]
  - OESOPHAGITIS [None]
